FAERS Safety Report 18082681 (Version 1)
Quarter: 2020Q3

REPORT INFORMATION
  Report Type: Spontaneous
  Country: IN (occurrence: IN)
  Receive Date: 20200728
  Receipt Date: 20200728
  Transmission Date: 20201103
  Serious: Yes (Hospitalization, Other)
  Sender: FDA-Public Use
  Company Number: IN-AMERICAN REGENT INC-2020001539

PATIENT
  Sex: Female

DRUGS (2)
  1. FERINJECT [Suspect]
     Active Substance: FERRIC CARBOXYMALTOSE
     Indication: IRON DEFICIENCY ANAEMIA
     Dosage: 100?500 MG IN 100 ML NORMAL SALINE
     Route: 042
  2. FERINJECT [Suspect]
     Active Substance: FERRIC CARBOXYMALTOSE
     Indication: ANAEMIA OF PREGNANCY
     Dosage: 500?1000 MG IN 200 ML NORMAL SALINE
     Route: 042

REACTIONS (9)
  - Hospitalisation [Unknown]
  - Headache [Unknown]
  - Thrombophlebitis [Unknown]
  - Vomiting [Unknown]
  - Nausea [Unknown]
  - Pyrexia [Unknown]
  - Chills [Unknown]
  - Maternal exposure during pregnancy [Unknown]
  - Dizziness [Unknown]
